FAERS Safety Report 5720201-X (Version None)
Quarter: 2008Q2

REPORT INFORMATION
  Report Type: 
  Country: None (occurrence: None)
  Receive Date: 20080428
  Receipt Date: 20070524
  Transmission Date: 20081010
  Serious: No
  Sender: FDA-Public Use
  Company Number: US-AMGEN-US226225

PATIENT
  Sex: Female
  Weight: 102 kg

DRUGS (8)
  1. SENSIPAR [Suspect]
     Indication: HYPERPARATHYROIDISM SECONDARY
     Route: 048
     Dates: start: 20070401
  2. KLONOPIN [Concomitant]
     Route: 065
  3. HUMULIN R [Concomitant]
     Route: 065
  4. OXYCONTIN [Concomitant]
     Route: 065
  5. PRILOSEC [Concomitant]
     Route: 065
  6. ZOFRAN [Concomitant]
     Route: 065
  7. ACTOS [Concomitant]
     Route: 065
  8. ZELNORM [Concomitant]
     Route: 065

REACTIONS (1)
  - BLOOD PARATHYROID HORMONE DECREASED [None]
